FAERS Safety Report 13426901 (Version 2)
Quarter: 2017Q2

REPORT INFORMATION
  Report Type: Spontaneous
  Country: US (occurrence: US)
  Receive Date: 20170411
  Receipt Date: 20170522
  Transmission Date: 20170830
  Serious: No
  Sender: FDA-Public Use
  Company Number: US-PFIZER INC-2017150940

PATIENT
  Sex: Female

DRUGS (1)
  1. XELJANZ [Suspect]
     Active Substance: TOFACITINIB CITRATE
     Dosage: 5 MG, UNK

REACTIONS (12)
  - Drug ineffective [Unknown]
  - Joint stiffness [Unknown]
  - Arthralgia [Unknown]
  - Pain [Unknown]
  - Rash [Unknown]
  - Dry eye [Unknown]
  - Nail disorder [Unknown]
  - Sleep disorder [Unknown]
  - Joint swelling [Unknown]
  - Neck pain [Unknown]
  - Fatigue [Unknown]
  - Dyspepsia [Unknown]
